FAERS Safety Report 4646659-5 (Version None)
Quarter: 2005Q2

REPORT INFORMATION
  Report Type: 
  Country: None (occurrence: None)
  Receive Date: 20050422
  Receipt Date: 20050422
  Transmission Date: 20051028
  Serious: Yes (Hospitalization)
  Sender: FDA-Public Use
  Company Number: None

PATIENT
  Age: 43 Year
  Sex: Male
  Weight: 85.3 kg

DRUGS (6)
  1. OXYCODONE AND ACETAMINOPHEN [Suspect]
  2. QUETIAPINE FUMARATE [Concomitant]
  3. DM 10/GUAIFENESIN [Concomitant]
  4. DIVALPROEX SODIUM [Concomitant]
  5. QUETIAPINE FUMARATE [Concomitant]
  6. WELLBUTRIN SR [Concomitant]

REACTIONS (3)
  - RASH [None]
  - SWELLING [None]
  - URTICARIA [None]
